FAERS Safety Report 7895452-9 (Version None)
Quarter: 2011Q4

REPORT INFORMATION
  Report Type: 
  Country: None (occurrence: None)
  Receive Date: 20111106
  Receipt Date: 20110826
  Transmission Date: 20120403
  Serious: No
  Sender: FDA-Public Use
  Company Number: US-AMGEN-USASP2011043800

PATIENT
  Sex: Female

DRUGS (2)
  1. ENBREL [Suspect]
     Indication: PSORIASIS
     Dosage: 50 MG, QWK
     Dates: start: 20110527
  2. ENBREL [Suspect]
     Dosage: 50 MG, QWK
     Dates: start: 20110527

REACTIONS (2)
  - COUGH [None]
  - PRODUCTIVE COUGH [None]
